FAERS Safety Report 18600628 (Version 1)
Quarter: 2020Q4

REPORT INFORMATION
  Report Type: Other
  Country: US (occurrence: US)
  Receive Date: 20201210
  Receipt Date: 20201210
  Transmission Date: 20210114
  Serious: Yes (Hospitalization, Other)
  Sender: FDA-Public Use
  Company Number: US-ROCHE-2725594

PATIENT

DRUGS (1)
  1. MYCOPHENOLATE MOFETIL. [Suspect]
     Active Substance: MYCOPHENOLATE MOFETIL
     Indication: PROPHYLAXIS AGAINST GRAFT VERSUS HOST DISEASE
     Route: 065

REACTIONS (14)
  - Pyrexia [Recovered/Resolved]
  - Syncope [Recovered/Resolved]
  - Visual impairment [Recovered/Resolved]
  - Neutropenia [Unknown]
  - Thrombocytopenia [Unknown]
  - Transaminases increased [Recovered/Resolved]
  - Epstein-Barr virus infection reactivation [Unknown]
  - Febrile neutropenia [Recovered/Resolved]
  - Device related infection [Recovered/Resolved]
  - Serum sickness [Recovered/Resolved]
  - Appendicitis [Recovered/Resolved]
  - Bacteraemia [Recovered/Resolved]
  - Delirium [Recovered/Resolved]
  - Post transplant lymphoproliferative disorder [Recovered/Resolved]
